FAERS Safety Report 4557249-7 (Version None)
Quarter: 2005Q1

REPORT INFORMATION
  Report Type: 
  Country: None (occurrence: None)
  Receive Date: 20050120
  Receipt Date: 20050114
  Transmission Date: 20050727
  Serious: Yes (Other)
  Sender: FDA-Public Use
  Company Number: PHEH2005US00964

PATIENT
  Sex: Male

DRUGS (2)
  1. TRILEPTAL [Suspect]
  2. TEMODAR [Suspect]
     Dates: end: 20041217

REACTIONS (3)
  - DRUG INTERACTION [None]
  - DYSARTHRIA [None]
  - FACIAL PALSY [None]
